FAERS Safety Report 4873777-9 (Version None)
Quarter: 2006Q1

REPORT INFORMATION
  Report Type: 
  Country: None (occurrence: None)
  Receive Date: 20060103
  Receipt Date: 20060103
  Transmission Date: 20060701
  Serious: Yes (Other)
  Sender: FDA-Public Use
  Company Number: None

PATIENT

DRUGS (1)
  1. PROMETHAZINE [Suspect]
     Indication: NAUSEA
     Dosage: 12.5 MG
     Dates: start: 20050617

REACTIONS (3)
  - CONFUSIONAL STATE [None]
  - INCOHERENT [None]
  - RESTLESSNESS [None]
